FAERS Safety Report 18073696 (Version 1)
Quarter: 2020Q3

REPORT INFORMATION
  Report Type: Spontaneous
  Country: US (occurrence: US)
  Receive Date: 20200727
  Receipt Date: 20200727
  Transmission Date: 20201103
  Serious: Yes (Other)
  Sender: FDA-Public Use
  Company Number: US-GLAXOSMITHKLINE-US2020136686

PATIENT
  Age: 62 Year
  Sex: Female

DRUGS (2)
  1. NUCALA [Suspect]
     Active Substance: MEPOLIZUMAB
     Indication: ASTHMA
     Dosage: UNK
     Dates: start: 20200709
  2. NUCALA [Suspect]
     Active Substance: MEPOLIZUMAB
     Indication: ASTHMA
     Dosage: UNK
     Dates: start: 202002

REACTIONS (8)
  - Pneumonia [Recovered/Resolved]
  - Injection site bruising [Unknown]
  - Injection site pain [Unknown]
  - Herpes virus infection [Unknown]
  - Product dose omission issue [Unknown]
  - Headache [Unknown]
  - Wrong technique in device usage process [Unknown]
  - Condition aggravated [Unknown]

NARRATIVE: CASE EVENT DATE: 202002
